FAERS Safety Report 12512595 (Version 1)
Quarter: 2016Q2

REPORT INFORMATION
  Report Type: Spontaneous
  Country: US (occurrence: None)
  Receive Date: 20160629
  Receipt Date: 20160629
  Transmission Date: 20160815
  Serious: Yes (Hospitalization)
  Sender: FDA-Public Use
  Company Number: None

PATIENT
  Age: 2 Year
  Sex: Female
  Weight: 10.3 kg

DRUGS (3)
  1. DAUNORUBICIN [Suspect]
     Active Substance: DAUNORUBICIN
     Dates: end: 20160412
  2. THIOGUANINE (6-TG) [Suspect]
     Active Substance: THIOGUANINE ANHYDROUS
     Dates: end: 20160412
  3. CYTARABINE. [Suspect]
     Active Substance: CYTARABINE
     Dates: end: 20160413

REACTIONS (11)
  - Respiratory distress [None]
  - Acute kidney injury [None]
  - Renal ischaemia [None]
  - Condition aggravated [None]
  - Lung infection [None]
  - Hypoxia [None]
  - Febrile neutropenia [None]
  - Nephropathy toxic [None]
  - Croup infectious [None]
  - Fluid overload [None]
  - Renal replacement therapy [None]

NARRATIVE: CASE EVENT DATE: 20160422
